FAERS Safety Report 4907185-9 (Version None)
Quarter: 2006Q1

REPORT INFORMATION
  Report Type: 
  Country: None (occurrence: None)
  Receive Date: 20060207
  Receipt Date: 20060117
  Transmission Date: 20060701
  Serious: Yes (Hospitalization, Other)
  Sender: FDA-Public Use
  Company Number: US_0510122982

PATIENT
  Age: 49 Year
  Sex: Male
  Weight: 86.4 kg

DRUGS (10)
  1. ZYPREXA [Suspect]
     Dosage: 10 MG, ORAL ; 5 MG, EACH EVENING, ORAL
     Route: 048
     Dates: start: 20020117, end: 20020207
  2. ZYPREXA [Suspect]
     Dosage: 10 MG, ORAL ; 5 MG, EACH EVENING, ORAL
     Route: 048
     Dates: start: 20020208, end: 20050401
  3. WELLBUTRIN [Concomitant]
  4. LEXAPRO /USA/(ESCITALOPRAM) [Concomitant]
  5. AMBIEN [Concomitant]
  6. TOPROL-XL [Concomitant]
  7. ALTACE [Concomitant]
  8. ASPIRIN ^COX^ (ACETYLSALICYLIC ACID) [Concomitant]
  9. TRICOR [Concomitant]
  10. ADVICOR [Concomitant]

REACTIONS (17)
  - ANGINA UNSTABLE [None]
  - BLOOD PRESSURE ABNORMAL [None]
  - BLOOD TRIGLYCERIDES INCREASED [None]
  - CONDITION AGGRAVATED [None]
  - CORONARY ARTERY OCCLUSION [None]
  - DIABETES MELLITUS [None]
  - ECHOCARDIOGRAM ABNORMAL [None]
  - HYPERCHOLESTEROLAEMIA [None]
  - HYPERHOMOCYSTEINAEMIA [None]
  - HYPERLIPIDAEMIA [None]
  - HYPERTENSION [None]
  - HYPOAESTHESIA [None]
  - MYOCARDIAL INFARCTION [None]
  - MYOCARDIAL ISCHAEMIA [None]
  - PROTEIN URINE PRESENT [None]
  - TRICUSPID VALVE INCOMPETENCE [None]
  - WEIGHT INCREASED [None]
